FAERS Safety Report 9848220 (Version 4)
Quarter: 2014Q1

REPORT INFORMATION
  Report Type: Report from Study
  Country: US (occurrence: US)
  Receive Date: 20140128
  Receipt Date: 20140225
  Transmission Date: 20141002
  Serious: Yes (Hospitalization)
  Sender: FDA-Public Use
  Company Number: PHEH2013US021841

PATIENT
  Age: 73 Year
  Sex: Male
  Weight: 195 kg

DRUGS (28)
  1. GLEEVEC [Suspect]
     Indication: SOFT TISSUE NEOPLASM
     Dosage: 400 MG, QD
     Route: 048
     Dates: start: 20130926
  2. GLEEVEC [Suspect]
     Indication: GASTROINTESTINAL STROMAL TUMOUR
     Dosage: 400 MG, DAILY
     Route: 048
  3. GLEEVEC [Suspect]
     Dosage: 400 MG, DAILY TABLET
     Route: 048
  4. GLEEVEC [Suspect]
     Dosage: 400 MG, UNK
     Route: 048
     Dates: start: 20131101, end: 20140110
  5. LANTUS [Concomitant]
     Dosage: 200 U, EVERY MORNING
     Route: 058
  6. TOPROL XL [Concomitant]
     Dosage: 1 DF, EVERY DAY
     Route: 048
  7. ASPIRIN [Concomitant]
     Dosage: 1 DF, EVERY MORNING
     Route: 048
  8. LISINOPRIL [Concomitant]
     Dosage: 40 MG, DAILY
     Route: 048
  9. NORVASC [Concomitant]
     Dosage: 1 DF, EVERY MORNING
     Route: 048
  10. CARDURA [Concomitant]
     Dosage: 1 DF, EVERY DAY
     Route: 048
  11. LASIX [Concomitant]
     Dosage: 20 MG, EVERY MORNING
     Route: 048
  12. LOPID [Concomitant]
     Dosage: 1 DF, 2 TIMES DAILY
     Route: 048
  13. POTASSIUM [Concomitant]
     Dosage: UNK UKN, UNK
  14. GLUCOPHAGE [Concomitant]
     Dosage: 1 DF, EVERY DAY
  15. HEXAVITAMIN [Concomitant]
     Dosage: 1 DF, EVERY DAY
     Route: 048
  16. CARMOL [Concomitant]
     Dosage: 40 %, TWICE DAILY
     Route: 061
  17. APRESOLINE [Concomitant]
     Dosage: 100 MG, THREE TIMES DAILY
     Route: 048
  18. VITAMIN D [Concomitant]
     Dosage: 2000 U, EVERY DAY
     Route: 048
  19. FOSAMAX [Concomitant]
     Dosage: 1 DF, EVERY SATURDAY
     Route: 048
  20. TYLENOL [Concomitant]
     Indication: BACK PAIN
     Dosage: UNK UKN, PRN
  21. VITAMIN B12 [Concomitant]
     Dosage: 1 DF, EVERY DAY
     Route: 048
  22. COLACE [Concomitant]
     Dosage: 1 DF, 2 TIMES DAILY
     Route: 048
     Dates: start: 20130719
  23. FLAXSEED OIL [Concomitant]
     Dosage: 1 DF, 2 TIMES DAILY
     Route: 048
  24. PRINIVIL [Concomitant]
     Dosage: 1 DF, EVERY MORNING
     Route: 048
  25. KLOR CON M20 [Concomitant]
     Dosage: 1 DF, 2 TIMES DAILY
     Route: 048
  26. ZOCOR [Concomitant]
     Route: 048
  27. ARB//ACETYLCYSTEINE [Concomitant]
     Route: 048
  28. VICODIN [Concomitant]
     Dosage: UNK UKN, UNK
     Route: 048

REACTIONS (21)
  - Benign bone neoplasm [Unknown]
  - Incision site pain [Unknown]
  - Joint range of motion decreased [Unknown]
  - Neuralgia [Unknown]
  - Mass [Unknown]
  - Ulcer [Unknown]
  - Tumour haemorrhage [Recovered/Resolved with Sequelae]
  - Arthralgia [Unknown]
  - Oedema peripheral [Unknown]
  - Renal failure [Recovering/Resolving]
  - Pain in extremity [Unknown]
  - Dizziness [Unknown]
  - Somnolence [Unknown]
  - Fatigue [Unknown]
  - Drug ineffective [Not Recovered/Not Resolved]
  - Soft tissue neoplasm [Unknown]
  - Neoplasm recurrence [Unknown]
  - Malignant neoplasm progression [Recovered/Resolved with Sequelae]
  - Diarrhoea [Recovered/Resolved]
  - Hypoglycaemia [Recovered/Resolved]
  - Blood glucose decreased [Recovered/Resolved]
